FAERS Safety Report 25788344 (Version 1)
Quarter: 2025Q3

REPORT INFORMATION
  Report Type: Spontaneous
  Country: US (occurrence: US)
  Receive Date: 20250910
  Receipt Date: 20250910
  Transmission Date: 20251021
  Serious: Yes (Hospitalization)
  Sender: NOVO NORDISK
  Company Number: US-NOVOPROD-1516046

PATIENT
  Age: 58 Year
  Sex: Male

DRUGS (3)
  1. RYBELSUS [Suspect]
     Active Substance: SEMAGLUTIDE
     Indication: Weight control
     Dosage: 14 MG, QD
     Route: 048
     Dates: start: 202503
  2. RYBELSUS [Suspect]
     Active Substance: SEMAGLUTIDE
     Indication: Glucose tolerance impaired
  3. RYBELSUS [Suspect]
     Active Substance: SEMAGLUTIDE
     Indication: Blood pressure abnormal

REACTIONS (4)
  - Road traffic accident [Recovered/Resolved]
  - Limb injury [Recovered/Resolved]
  - Spinal column injury [Unknown]
  - Product use in unapproved indication [Unknown]

NARRATIVE: CASE EVENT DATE: 20250610
